FAERS Safety Report 8214500-X (Version None)
Quarter: 2012Q1

REPORT INFORMATION
  Report Type: 
  Country: None (occurrence: None)
  Receive Date: 20120316
  Receipt Date: 20120316
  Transmission Date: 20120608
  Serious: Yes (Other)
  Sender: FDA-Public Use
  Company Number: None

PATIENT
  Age: 42 Year
  Sex: Female
  Weight: 86.182 kg

DRUGS (1)
  1. PAXIL [Suspect]
     Dosage: 1 TABLET
     Route: 048

REACTIONS (7)
  - DRUG WITHDRAWAL SYNDROME [None]
  - HEADACHE [None]
  - HYPERHIDROSIS [None]
  - DISTURBANCE IN ATTENTION [None]
  - CRYING [None]
  - HYPERACUSIS [None]
  - NAUSEA [None]
